FAERS Safety Report 13135436 (Version 2)
Quarter: 2017Q1

REPORT INFORMATION
  Report Type: Report from Study
  Country: None (occurrence: US)
  Receive Date: 20170120
  Receipt Date: 20170331
  Transmission Date: 20170428
  Serious: Yes (Hospitalization)
  Sender: FDA-Public Use
  Company Number: US-ABBVIE-17P-163-1842255-00

PATIENT
  Sex: Male

DRUGS (1)
  1. HUMIRA [Suspect]
     Active Substance: ADALIMUMAB
     Indication: CROHN^S DISEASE
     Route: 058
     Dates: start: 2007

REACTIONS (11)
  - Chills [Unknown]
  - Feeling cold [Unknown]
  - Feeling abnormal [Unknown]
  - Pain [Unknown]
  - Colectomy [Unknown]
  - Drug level decreased [Unknown]
  - Stress [Unknown]
  - Headache [Recovered/Resolved]
  - Back pain [Recovering/Resolving]
  - Lymphadenitis [Unknown]
  - Gastrointestinal inflammation [Unknown]

NARRATIVE: CASE EVENT DATE: 2015
